FAERS Safety Report 12246843 (Version 1)
Quarter: 2016Q2

REPORT INFORMATION
  Report Type: Report from Study
  Country: US (occurrence: US)
  Receive Date: 20160407
  Receipt Date: 20160407
  Transmission Date: 20160815
  Serious: Yes (Other)
  Sender: FDA-Public Use
  Company Number: US-GILEAD-2016-0206466

PATIENT
  Age: 29 Year
  Sex: Female

DRUGS (1)
  1. LEDIPASVIR/SOFOSBUVIR [Suspect]
     Active Substance: LEDIPASVIR\SOFOSBUVIR
     Indication: HEPATITIS C
     Dosage: 1 DF, QD
     Route: 048
     Dates: start: 20141204, end: 20150201

REACTIONS (5)
  - Fatigue [Unknown]
  - Escherichia sepsis [Unknown]
  - Blood immunoglobulin A abnormal [Unknown]
  - Headache [Unknown]
  - Drug abuse [Unknown]
